FAERS Safety Report 9850115 (Version 1)
Quarter: 2013Q4

REPORT INFORMATION
  Report Type: Spontaneous
  Country: US (occurrence: None)
  Receive Date: 20131226
  Receipt Date: 20131226
  Transmission Date: 20140711
  Serious: Yes (Other)
  Sender: FDA-Public Use
  Company Number: PHEH2012US015001

PATIENT
  Age: 78 Year
  Sex: Male
  Weight: 90 kg

DRUGS (1)
  1. SANDOSTATIN [Suspect]
     Indication: DIARRHOEA
     Dosage: 30 MG , UNK, SUBCUTANEOUS
     Route: 058
     Dates: start: 20100419, end: 20120815

REACTIONS (1)
  - Blood glucose increased [None]
